FAERS Safety Report 24984373 (Version 1)
Quarter: 2025Q1

REPORT INFORMATION
  Report Type: Spontaneous
  Country: LK (occurrence: LK)
  Receive Date: 20250219
  Receipt Date: 20250219
  Transmission Date: 20250408
  Serious: Yes (Death, Hospitalization)
  Sender: Norvium Bioscience
  Company Number: LK-Norvium Bioscience LLC-079890

PATIENT
  Age: 6 Decade
  Sex: Male

DRUGS (1)
  1. NIFEDIPINE [Suspect]
     Active Substance: NIFEDIPINE
     Indication: Product used for unknown indication

REACTIONS (6)
  - Toxicity to various agents [Fatal]
  - Trismus [Fatal]
  - Sinus tachycardia [Fatal]
  - Vomiting [Fatal]
  - Hyperglycaemia [Fatal]
  - Dizziness [Fatal]
